FAERS Safety Report 9786924 (Version 2)
Quarter: 2014Q3

REPORT INFORMATION
  Report Type: Report from Study
  Country: DE (occurrence: TR)
  Receive Date: 20131227
  Receipt Date: 20140709
  Transmission Date: 20150326
  Serious: Yes (Death)
  Sender: FDA-Public Use
  Company Number: DE-ACTELION-A-US2013-92878

PATIENT
  Age: 77 Year
  Sex: Female

DRUGS (6)
  1. PANKREOFLAT [Concomitant]
  2. COUMADIN [Concomitant]
     Active Substance: WARFARIN SODIUM
  3. IRBESARTAN. [Concomitant]
     Active Substance: IRBESARTAN
  4. DESAL [Concomitant]
     Active Substance: FUROSEMIDE
  5. DILATREND [Concomitant]
     Active Substance: CARVEDILOL
  6. VENTAVIS [Suspect]
     Active Substance: ILOPROST
     Indication: PULMONARY HYPERTENSION
     Dosage: UNK
     Route: 055
     Dates: start: 20110627, end: 20131216

REACTIONS (2)
  - Myocardial infarction [Fatal]
  - Cough [Unknown]

NARRATIVE: CASE EVENT DATE: 20131215
